FAERS Safety Report 5590692-6 (Version None)
Quarter: 2008Q1

REPORT INFORMATION
  Report Type: 
  Country: None (occurrence: None)
  Receive Date: 20080114
  Receipt Date: 20080108
  Transmission Date: 20080703
  Serious: Yes (Other)
  Sender: FDA-Public Use
  Company Number: ES-PFIZER INC-2006115285

PATIENT
  Age: 5 Year
  Sex: Male

DRUGS (1)
  1. GENOTONORM [Suspect]
     Indication: FOETAL GROWTH RETARDATION
     Dosage: DAILY DOSE:.4MG-FREQ:EVERY DAY
     Route: 058
     Dates: start: 20050728, end: 20060922

REACTIONS (3)
  - EYELID OEDEMA [None]
  - HEADACHE [None]
  - HYPERTHERMIA [None]
